FAERS Safety Report 5124450-3 (Version None)
Quarter: 2006Q4

REPORT INFORMATION
  Report Type: 
  Country: None (occurrence: None)
  Receive Date: 20060816
  Receipt Date: 20060619
  Transmission Date: 20070319
  Serious: No
  Sender: FDA-Public Use
  Company Number: US200602003273

PATIENT
  Age: 55 Year
  Sex: Male

DRUGS (6)
  1. CIALIS [Suspect]
     Indication: ERECTILE DYSFUNCTION
     Dosage: SEE IMAGE
     Dates: start: 20050701
  2. MICARDIS [Suspect]
  3. PREVACID [Concomitant]
  4. VIAGRA/SWE/SILDENAFIL CITRATE) [Concomitant]
  5. LIPITOR [Concomitant]
  6. ALPRAZOLAM [Concomitant]

REACTIONS (5)
  - BUNDLE BRANCH BLOCK RIGHT [None]
  - CARDIAC HYPERTROPHY [None]
  - ELECTROCARDIOGRAM ABNORMAL [None]
  - FLUSHING [None]
  - GASTROOESOPHAGEAL REFLUX DISEASE [None]
